FAERS Safety Report 13979497 (Version 1)
Quarter: 2017Q3

REPORT INFORMATION
  Report Type: Spontaneous
  Country: US (occurrence: US)
  Receive Date: 20170914
  Receipt Date: 20170914
  Transmission Date: 20171128
  Serious: No
  Sender: FDA-Public Use
  Company Number: US-009507513-1709USA005725

PATIENT

DRUGS (2)
  1. STERILE DILUENT [Suspect]
     Active Substance: WATER
     Indication: PROPHYLAXIS
     Dosage: VACCINATED WITH - STERILE DILUENT
     Dates: start: 20170911, end: 20170911
  2. ZOSTAVAX [Concomitant]
     Active Substance: VARICELLA-ZOSTER VIRUS STRAIN OKA/MERCK LIVE ANTIGEN
     Indication: PROPHYLAXIS
     Dates: start: 20170911, end: 20170911

REACTIONS (2)
  - Expired product administered [Unknown]
  - No adverse event [Unknown]

NARRATIVE: CASE EVENT DATE: 20170911
